FAERS Safety Report 22130741 (Version 1)
Quarter: 2023Q1

REPORT INFORMATION
  Report Type: Spontaneous
  Country: US (occurrence: None)
  Receive Date: 20230323
  Receipt Date: 20230323
  Transmission Date: 20230418
  Serious: No
  Sender: FDA-Public Use
  Company Number: US-Hikma Pharmaceuticals USA Inc.-US-H14001-23-00163

PATIENT
  Age: 78 Year
  Sex: Female

DRUGS (1)
  1. FLUTICASONE PROPIONATE AND SALMETEROL [Suspect]
     Active Substance: FLUTICASONE PROPIONATE\SALMETEROL XINAFOATE
     Indication: Asthma
     Dosage: ONE INHALATION
     Dates: start: 20230111, end: 20230111

REACTIONS (6)
  - Vision blurred [Recovered/Resolved]
  - Allergic reaction to excipient [Recovering/Resolving]
  - Tremor [Recovered/Resolved]
  - Paraesthesia oral [Recovering/Resolving]
  - Oral discomfort [Recovering/Resolving]
  - Dyspepsia [Not Recovered/Not Resolved]

NARRATIVE: CASE EVENT DATE: 20230111
